FAERS Safety Report 22259231 (Version 1)
Quarter: 2023Q2

REPORT INFORMATION
  Report Type: Spontaneous
  Country: SA (occurrence: SA)
  Receive Date: 20230427
  Receipt Date: 20230427
  Transmission Date: 20230721
  Serious: Yes (Death, Life-Threatening, Hospitalization, Other)
  Sender: FDA-Public Use
  Company Number: SA-PFIZER INC-PV202300073045

PATIENT
  Age: 37 Year
  Sex: Female

DRUGS (3)
  1. ANIDULAFUNGIN [Suspect]
     Active Substance: ANIDULAFUNGIN
     Indication: Postoperative wound infection
     Dosage: UNK
  2. IMIPENEM [Concomitant]
     Active Substance: IMIPENEM
     Indication: Postoperative wound infection
     Dosage: UNK
  3. AMPICILLIN [Concomitant]
     Active Substance: AMPICILLIN
     Indication: Postoperative wound infection
     Dosage: UNK

REACTIONS (2)
  - Drug ineffective for unapproved indication [Fatal]
  - Off label use [Fatal]
